FAERS Safety Report 19789907 (Version 2)
Quarter: 2022Q2

REPORT INFORMATION
  Report Type: Spontaneous
  Country: CA (occurrence: CA)
  Receive Date: 20210905
  Receipt Date: 20220426
  Transmission Date: 20220721
  Serious: Yes (Other)
  Sender: FDA-Public Use
  Company Number: CA-TEVA-2021-CA-1948223

PATIENT
  Age: 72 Year
  Sex: Male

DRUGS (13)
  1. GABAPENTIN [Suspect]
     Active Substance: GABAPENTIN
     Indication: Hiccups
     Dosage: 300 MILLIGRAM DAILY;
     Route: 065
  2. GABAPENTIN [Suspect]
     Active Substance: GABAPENTIN
     Dosage: 300 MILLIGRAM DAILY;
     Route: 065
  3. CHLORPROMAZINE [Suspect]
     Active Substance: CHLORPROMAZINE
     Indication: Hiccups
     Dosage: 100 MILLIGRAM DAILY;
     Route: 065
  4. ASPIRIN [Concomitant]
     Active Substance: ASPIRIN
  5. ATORVASTATIN [Concomitant]
     Active Substance: ATORVASTATIN
  6. CLOPIDOGREL [Concomitant]
     Active Substance: CLOPIDOGREL BISULFATE
  7. DOCUSATE [Concomitant]
     Active Substance: DOCUSATE
  8. ENOXAPARIN [Concomitant]
     Active Substance: ENOXAPARIN
  9. LEVOFLOXACIN [Concomitant]
     Active Substance: LEVOFLOXACIN
  10. METOPROLOL [Concomitant]
     Active Substance: METOPROLOL
     Route: 065
  11. PANTOPRAZOLE [Concomitant]
     Active Substance: PANTOPRAZOLE
  12. RAMIPRIL [Concomitant]
     Active Substance: RAMIPRIL
  13. TAMSULOSIN [Concomitant]
     Active Substance: TAMSULOSIN

REACTIONS (2)
  - Confusional state [Unknown]
  - Off label use [Unknown]
